FAERS Safety Report 6741994-9 (Version None)
Quarter: 2010Q2

REPORT INFORMATION
  Report Type: 
  Country: None (occurrence: None)
  Receive Date: 20100524
  Receipt Date: 20100506
  Transmission Date: 20101027
  Serious: Yes (Other)
  Sender: FDA-Public Use
  Company Number: FR-SEPTODONT-201000096

PATIENT
  Age: 47 Year
  Sex: Female

DRUGS (2)
  1. SEPTANEST (ARTICAINE HYDROCHLORIDE 4% WITH EPINEPHRINE 1:200,000) [Suspect]
     Indication: LOCAL ANAESTHESIA
     Dosage: DENTAL
     Route: 004
     Dates: start: 20100205
  2. XYLOCAINE VISQUEUSE (LIDOCAINE HYDROCHLORIDE MONOHYDRATE) [Concomitant]

REACTIONS (2)
  - OCULAR VASCULAR DISORDER [None]
  - THROMBOSIS [None]
